FAERS Safety Report 12727133 (Version 1)
Quarter: 2016Q3

REPORT INFORMATION
  Report Type: Spontaneous
  Country: BR (occurrence: BR)
  Receive Date: 20160909
  Receipt Date: 20160909
  Transmission Date: 20161109
  Serious: Yes (Hospitalization, Other)
  Sender: FDA-Public Use
  Company Number: BR-ABBVIE-16K-020-1719571-00

PATIENT
  Age: 22 Year
  Sex: Female
  Weight: 59 kg

DRUGS (8)
  1. HUMIRA [Suspect]
     Active Substance: ADALIMUMAB
     Route: 058
  2. AIXA [Concomitant]
     Indication: PRODUCT USED FOR UNKNOWN INDICATION
  3. MESALAZINE [Concomitant]
     Active Substance: MESALAMINE
     Indication: CROHN^S DISEASE
  4. METICORTEN [Concomitant]
     Active Substance: PREDNISONE
     Indication: CROHN^S DISEASE
  5. AZATHIOPRINE. [Concomitant]
     Active Substance: AZATHIOPRINE
     Indication: CROHN^S DISEASE
  6. HUMIRA [Suspect]
     Active Substance: ADALIMUMAB
     Indication: CROHN^S DISEASE
     Dosage: LOADING DOSE
     Route: 058
     Dates: start: 2009, end: 2009
  7. HUMIRA [Suspect]
     Active Substance: ADALIMUMAB
     Dosage: LOADING DOSE
     Route: 058
  8. SELENE [Concomitant]
     Indication: PRODUCT USED FOR UNKNOWN INDICATION

REACTIONS (4)
  - Infection [Unknown]
  - Multiple sclerosis [Not Recovered/Not Resolved]
  - Bone marrow disorder [Unknown]
  - Optic neuritis [Unknown]

NARRATIVE: CASE EVENT DATE: 201606
